FAERS Safety Report 25137890 (Version 1)
Quarter: 2025Q1

REPORT INFORMATION
  Report Type: Spontaneous
  Country: US (occurrence: US)
  Receive Date: 20250329
  Receipt Date: 20250329
  Transmission Date: 20250409
  Serious: No
  Sender: ALEXION PHARMACEUTICALS
  Company Number: US-AstraZeneca-CH-00832979AP

PATIENT

DRUGS (1)
  1. SYMBICORT AEROSPHERE [Suspect]
     Active Substance: BUDESONIDE\FORMOTEROL FUMARATE
     Indication: Occupational asthma
     Route: 065

REACTIONS (6)
  - Visual impairment [Unknown]
  - Exposure to extreme temperature [Unknown]
  - Drug effect less than expected [Unknown]
  - Wrong technique in device usage process [Unknown]
  - Product dose omission issue [Unknown]
  - Product use issue [Unknown]
